FAERS Safety Report 7623532-1 (Version None)
Quarter: 2011Q3

REPORT INFORMATION
  Report Type: 
  Country: None (occurrence: None)
  Receive Date: 20110720
  Receipt Date: 20110707
  Transmission Date: 20111222
  Serious: Yes (Other)
  Sender: FDA-Public Use
  Company Number: US-ELI_LILLY_AND_COMPANY-US201107002462

PATIENT
  Age: 48 Year
  Sex: Female

DRUGS (12)
  1. METHADONE HCL [Concomitant]
  2. ROXICODONE [Concomitant]
  3. CYMBALTA [Suspect]
     Dosage: 90 MG, QD
     Dates: start: 20110301
  4. CELEXA [Concomitant]
  5. MOBIC [Concomitant]
  6. PRAVASTATIN [Concomitant]
  7. ZANTAC [Concomitant]
  8. CYMBALTA [Suspect]
     Indication: DEPRESSION
     Dosage: 60 MG, QD
     Dates: start: 20080101, end: 20110301
  9. ROBAXIN [Concomitant]
  10. XANAX [Concomitant]
  11. CYMBALTA [Suspect]
     Dosage: 90 MG, QD
     Dates: start: 20110301
  12. NEURONTIN [Concomitant]

REACTIONS (2)
  - DRUG INEFFECTIVE [None]
  - BASAL CELL CARCINOMA [None]
